FAERS Safety Report 9126960 (Version 4)
Quarter: 2013Q3

REPORT INFORMATION
  Report Type: Spontaneous
  Country: US (occurrence: US)
  Receive Date: 20130122
  Receipt Date: 20130723
  Transmission Date: 20140515
  Serious: Yes (Other)
  Sender: FDA-Public Use
  Company Number: US-GLAXOSMITHKLINE-A0994857A

PATIENT
  Age: 51 Year
  Sex: Female

DRUGS (3)
  1. FLOLAN [Suspect]
     Indication: PULMONARY ARTERIAL HYPERTENSION
     Dosage: 15.1NGKM CONTINUOUS
     Route: 042
     Dates: start: 20081007
  2. TRACLEER [Concomitant]
  3. COUMADIN [Concomitant]

REACTIONS (6)
  - Lower respiratory tract infection [Unknown]
  - Chest discomfort [Unknown]
  - Nasal congestion [Unknown]
  - Dizziness [Unknown]
  - Medical device complication [Unknown]
  - Seasonal allergy [Not Recovered/Not Resolved]
